FAERS Safety Report 16644805 (Version 1)
Quarter: 2019Q3

REPORT INFORMATION
  Report Type: Spontaneous
  Country: ZA (occurrence: ZA)
  Receive Date: 20190729
  Receipt Date: 20190729
  Transmission Date: 20191004
  Serious: Yes (Other)
  Sender: FDA-Public Use
  Company Number: ZA-PFIZER INC-2019319293

PATIENT
  Age: 49 Year
  Sex: Female
  Weight: 70 kg

DRUGS (5)
  1. CHLOROQUINE. [Suspect]
     Active Substance: CHLOROQUINE
     Dosage: 2000
     Dates: start: 2000
  2. ARAVA [Suspect]
     Active Substance: LEFLUNOMIDE
     Dosage: 20
     Dates: start: 20151021
  3. PREDNISOLONE. [Suspect]
     Active Substance: PREDNISOLONE
     Dosage: ON AND OFF
  4. SALAZOPYRIN [Suspect]
     Active Substance: SULFASALAZINE
     Dosage: 3 G, UNK
     Dates: start: 20141205
  5. METHOTREXATE. [Suspect]
     Active Substance: METHOTREXATE
     Dosage: 20
     Dates: start: 20141003

REACTIONS (1)
  - Polyarthritis [Unknown]
